FAERS Safety Report 4732769-0 (Version None)
Quarter: 2005Q3

REPORT INFORMATION
  Report Type: 
  Country: None (occurrence: None)
  Receive Date: 20050803
  Receipt Date: 20050722
  Transmission Date: 20060218
  Serious: Yes (Hospitalization)
  Sender: FDA-Public Use
  Company Number: FR-GLAXOSMITHKLINE-B0388603A

PATIENT
  Age: 19 Year
  Sex: Female

DRUGS (1)
  1. MALARONE [Suspect]
     Indication: MALARIA PROPHYLAXIS
     Route: 048

REACTIONS (5)
  - ANOREXIA [None]
  - DIARRHOEA [None]
  - FATIGUE [None]
  - MALARIA [None]
  - PYREXIA [None]
